FAERS Safety Report 24863715 (Version 1)
Quarter: 2025Q1

REPORT INFORMATION
  Report Type: Spontaneous
  Country: US (occurrence: US)
  Receive Date: 20250120
  Receipt Date: 20250120
  Transmission Date: 20250409
  Serious: No
  Sender: Phathom Pharmaceuticals
  Company Number: US-PHATHOM PHARMACEUTICALS INC.-2024PHT01414

PATIENT
  Age: 29 Year
  Sex: Female

DRUGS (7)
  1. VOQUEZNA [Suspect]
     Active Substance: VONOPRAZAN FUMARATE
     Indication: Gastrooesophageal reflux disease
     Dosage: 10 MG, 1X/DAY
     Route: 048
     Dates: start: 20241118, end: 2024
  2. VOQUEZNA [Suspect]
     Active Substance: VONOPRAZAN FUMARATE
     Dosage: 10 MG, EVERY OTHER DAY
     Route: 048
     Dates: start: 20241202
  3. NIZORAL [Concomitant]
     Active Substance: KETOCONAZOLE
  4. LORATADINE [Concomitant]
     Active Substance: LORATADINE
  5. PHEXXI [Concomitant]
     Active Substance: CITRIC ACID MONOHYDRATE\LACTIC ACID, L-\POTASSIUM BITARTRATE
  6. CARAFATE [Concomitant]
     Active Substance: SUCRALFATE
  7. PEPCID [Concomitant]
     Active Substance: FAMOTIDINE
     Dosage: 40 MG, 1X/DAY, IN THE EVENING

REACTIONS (5)
  - Chest pain [Unknown]
  - Chest discomfort [Unknown]
  - Nausea [Unknown]
  - Abdominal pain [Unknown]
  - Inappropriate schedule of product administration [Not Recovered/Not Resolved]

NARRATIVE: CASE EVENT DATE: 20241101
